FAERS Safety Report 23589199 (Version 2)
Quarter: 2024Q1

REPORT INFORMATION
  Report Type: Report from Study
  Country: US (occurrence: US)
  Receive Date: 20240303
  Receipt Date: 20240311
  Transmission Date: 20240410
  Serious: Yes (Other)
  Sender: FDA-Public Use
  Company Number: US-ABBVIE-5659737

PATIENT
  Sex: Female

DRUGS (3)
  1. SKYRIZI [Suspect]
     Active Substance: RISANKIZUMAB-RZAA
     Indication: Crohn^s disease
     Route: 058
     Dates: start: 2024
  2. SKYRIZI [Suspect]
     Active Substance: RISANKIZUMAB-RZAA
     Indication: Crohn^s disease
     Dosage: TIME INTERVAL: TOTAL
     Route: 042
     Dates: start: 20240124
  3. XELJANZ [Suspect]
     Active Substance: TOFACITINIB CITRATE
     Indication: Product used for unknown indication
     Route: 065

REACTIONS (13)
  - Intestinal obstruction [Recovering/Resolving]
  - Cellulitis [Unknown]
  - Folliculitis [Recovering/Resolving]
  - Malaise [Recovering/Resolving]
  - Infusion site reaction [Unknown]
  - Lethargy [Recovering/Resolving]
  - Fear of injection [Recovering/Resolving]
  - Pain [Recovering/Resolving]
  - Infusion site inflammation [Recovering/Resolving]
  - Contusion [Recovering/Resolving]
  - Rash [Recovering/Resolving]
  - Folliculitis [Recovering/Resolving]
  - Bell^s palsy [Recovering/Resolving]

NARRATIVE: CASE EVENT DATE: 20240101
